FAERS Safety Report 6130202-8 (Version None)
Quarter: 2009Q1

REPORT INFORMATION
  Report Type: 
  Country: None (occurrence: None)
  Receive Date: 20090324
  Receipt Date: 20090323
  Transmission Date: 20090719
  Serious: Yes (Life-Threatening, Hospitalization)
  Sender: FDA-Public Use
  Company Number: DE-ASTRAZENECA-2009PK00933

PATIENT
  Age: 71 Year
  Sex: Female
  Weight: 80 kg

DRUGS (13)
  1. BELOC ZOK FORTE [Interacting]
     Indication: HYPERTENSION
     Route: 048
     Dates: start: 20050101, end: 20081016
  2. BELOC ZOK FORTE [Interacting]
     Route: 048
     Dates: start: 20081021
  3. CALCIUM ACETATE [Suspect]
     Indication: OSTEOPOROSIS PROPHYLAXIS
     Route: 048
     Dates: end: 20081017
  4. CYNT [Interacting]
     Indication: HYPERTENSION
     Route: 048
     Dates: start: 20050101
  5. TOREM   50 [Interacting]
     Indication: HYPERTENSION
     Route: 048
     Dates: start: 20050101, end: 20081016
  6. TOREM   50 [Interacting]
     Route: 048
     Dates: start: 20081023
  7. DIOVANE [Interacting]
     Indication: HYPERTENSION
     Route: 048
     Dates: start: 20050101, end: 20081016
  8. DIOVANE [Interacting]
     Route: 048
     Dates: start: 20081019
  9. FLUVASTATIN [Concomitant]
     Indication: HYPERLIPIDAEMIA
     Route: 048
     Dates: start: 20050101
  10. ALLOPURINOL [Concomitant]
     Indication: HYPERURICAEMIA
     Route: 048
     Dates: start: 20050101
  11. ASPIRIN [Concomitant]
     Indication: PROPHYLAXIS
     Route: 048
     Dates: start: 20050101
  12. PROTAPHANE [Concomitant]
     Indication: TYPE 2 DIABETES MELLITUS
     Route: 058
     Dates: start: 20050101
  13. ACTRAPID [Concomitant]
     Indication: TYPE 2 DIABETES MELLITUS
     Route: 058
     Dates: start: 20050101

REACTIONS (1)
  - CIRCULATORY COLLAPSE [None]
